FAERS Safety Report 6897587-6 (Version None)
Quarter: 2010Q3

REPORT INFORMATION
  Report Type: 
  Country: None (occurrence: None)
  Receive Date: 20100729
  Receipt Date: 20100715
  Transmission Date: 20110219
  Serious: Yes (Hospitalization)
  Sender: FDA-Public Use
  Company Number: 1000015278

PATIENT
  Age: 30 Year
  Sex: Female

DRUGS (7)
  1. CITALOPRAM HYDROBROMIDE [Suspect]
     Indication: POSTPARTUM DEPRESSION
     Dosage: 5 GTT (5 GTT, 1 IN 1 D), ORAL
     Route: 048
     Dates: start: 20100629, end: 20100705
  2. HALDOL [Suspect]
     Indication: ACUTE PSYCHOSIS
     Dosage: 3 MG (3 MG, 1 IN 1 D), ORAL
     Route: 048
     Dates: start: 20100629, end: 20100706
  3. SEROQUEL [Suspect]
     Indication: ACUTE PSYCHOSIS
     Dosage: 50 MG (50 MG, 1 IN 1 D), ORAL
     Route: 048
  4. EUTIROX [Concomitant]
  5. AKINETON [Concomitant]
  6. BROMAN [Concomitant]
  7. DOSTINEX [Concomitant]

REACTIONS (5)
  - ALANINE AMINOTRANSFERASE INCREASED [None]
  - ASPARTATE AMINOTRANSFERASE INCREASED [None]
  - GAMMA-GLUTAMYLTRANSFERASE INCREASED [None]
  - HEPATITIS ACUTE [None]
  - LOW DENSITY LIPOPROTEIN INCREASED [None]
